FAERS Safety Report 5714558-3 (Version None)
Quarter: 2008Q2

REPORT INFORMATION
  Report Type: 
  Country: None (occurrence: None)
  Receive Date: 20080421
  Receipt Date: 20080409
  Transmission Date: 20081010
  Serious: Yes (Life-Threatening)
  Sender: FDA-Public Use
  Company Number: 000290

PATIENT
  Age: 67 Year
  Sex: Male

DRUGS (14)
  1. PLETAL [Suspect]
     Indication: MYOCARDIAL INFARCTION
     Dosage: 50 MG, QID
     Route: 048
     Dates: start: 20080216, end: 20080229
  2. PLETAL [Suspect]
     Indication: SICK SINUS SYNDROME
     Dosage: 50 MG, QID
     Route: 048
     Dates: start: 20080216, end: 20080229
  3. MUCOSTA (REBAMIPIDE) [Concomitant]
  4. BUFFERIN [Concomitant]
  5. AMIODIN OD (AMLODIPINE BESILATE) [Concomitant]
  6. LOCHOL (FLUVASTATIN SODIUM) [Concomitant]
  7. ACTOS (PIOGLITAZONE HYDROCHLOIRDE) [Concomitant]
  8. FAMOTIDINE [Concomitant]
  9. LENDORMIN D (BROTIZOLAM) [Concomitant]
  10. PROTERNOL-L (L-ISOPROTERENOL HYDROCHLOIDE) [Concomitant]
  11. TEGRETOL [Concomitant]
  12. PLAVIX [Concomitant]
  13. DOMPERIDONE (DOMPERIDONE) [Concomitant]
  14. GASCON (DIMETICONE) [Concomitant]

REACTIONS (4)
  - CORONARY ARTERY OCCLUSION [None]
  - LOSS OF CONSCIOUSNESS [None]
  - TORSADE DE POINTES [None]
  - VENTRICULAR TACHYCARDIA [None]
